FAERS Safety Report 15007440 (Version 7)
Quarter: 2025Q3

REPORT INFORMATION
  Report Type: Spontaneous
  Country: US (occurrence: US)
  Receive Date: 20180613
  Receipt Date: 20250922
  Transmission Date: 20251021
  Serious: No
  Sender: PFIZER
  Company Number: US-PFIZER INC-2018241505

PATIENT
  Age: 57 Year
  Sex: Male
  Weight: 73 kg

DRUGS (10)
  1. XELJANZ XR [Suspect]
     Active Substance: TOFACITINIB CITRATE
     Indication: Rheumatoid arthritis
     Dates: start: 201807
  2. GABAPENTIN [Concomitant]
     Active Substance: GABAPENTIN
     Dates: start: 2000
  3. AMBIEN [Concomitant]
     Active Substance: ZOLPIDEM TARTRATE
     Dates: start: 2000
  4. METHOTREXATE [Concomitant]
     Active Substance: METHOTREXATE
     Dates: start: 2000
  5. METHOCARBAMOL [Concomitant]
     Active Substance: METHOCARBAMOL
     Dates: start: 2000
  6. ATENOLOL [Concomitant]
     Active Substance: ATENOLOL
     Dates: start: 2000
  7. ASPIRIN [Concomitant]
     Active Substance: ASPIRIN
     Dates: start: 2000
  8. TERAZOSIN [Concomitant]
     Active Substance: TERAZOSIN HYDROCHLORIDE
     Dates: start: 2000
  9. DULOXETINE [Concomitant]
     Active Substance: DULOXETINE
     Dates: start: 2000
  10. NORCO [Concomitant]
     Active Substance: ACETAMINOPHEN\HYDROCODONE BITARTRATE
     Dates: start: 2000

REACTIONS (9)
  - Drug ineffective [Unknown]
  - Muscle spasms [Recovered/Resolved]
  - Pain in extremity [Recovered/Resolved]
  - Fatigue [Recovered/Resolved]
  - Discomfort [Recovered/Resolved]
  - Musculoskeletal stiffness [Recovered/Resolved]
  - Arthralgia [Unknown]
  - Joint swelling [Unknown]
  - Memory impairment [Unknown]
